FAERS Safety Report 5726520-5 (Version None)
Quarter: 2008Q2

REPORT INFORMATION
  Report Type: 
  Country: None (occurrence: None)
  Receive Date: 20080502
  Receipt Date: 20080422
  Transmission Date: 20081010
  Serious: Yes (Other)
  Sender: FDA-Public Use
  Company Number: US-MERCK-0707USA04229

PATIENT
  Age: 61 Year
  Sex: Female

DRUGS (3)
  1. FOSAMAX [Suspect]
     Route: 048
     Dates: end: 20050101
  2. FOSAMAX [Suspect]
     Route: 048
     Dates: start: 20010901
  3. FOSAMAX [Suspect]
     Route: 048
     Dates: start: 19951201

REACTIONS (18)
  - ACUTE SINUSITIS [None]
  - BACK PAIN [None]
  - BONE PAIN [None]
  - DRUG INEFFECTIVE [None]
  - FIBROSIS [None]
  - HEADACHE [None]
  - INTERVERTEBRAL DISC DEGENERATION [None]
  - LABYRINTHITIS [None]
  - LUMBAR RADICULOPATHY [None]
  - LUMBAR SPINAL STENOSIS [None]
  - LUNG DISORDER [None]
  - ORAL HERPES [None]
  - OSTEONECROSIS [None]
  - OSTEOPENIA [None]
  - ROTATOR CUFF SYNDROME [None]
  - SCOLIOSIS [None]
  - SPONDYLOLISTHESIS [None]
  - TEMPOROMANDIBULAR JOINT SYNDROME [None]
